FAERS Safety Report 8390563-6 (Version None)
Quarter: 2012Q2

REPORT INFORMATION
  Report Type: 
  Country: None (occurrence: None)
  Receive Date: 20120529
  Receipt Date: 20120517
  Transmission Date: 20120825
  Serious: Yes (Hospitalization)
  Sender: FDA-Public Use
  Company Number: US-JNJFOC-20120515465

PATIENT
  Sex: Female
  Weight: 44.91 kg

DRUGS (3)
  1. BETA-BLOCKER, NOS [Concomitant]
     Route: 065
  2. STEROIDS NOS [Concomitant]
     Route: 065
     Dates: start: 20120101
  3. REMICADE [Suspect]
     Indication: CROHN'S DISEASE
     Route: 042
     Dates: start: 20120509, end: 20120501

REACTIONS (4)
  - LUNG ABSCESS [None]
  - DEHYDRATION [None]
  - PLEURAL EFFUSION [None]
  - HAEMOGLOBIN DECREASED [None]
